FAERS Safety Report 7681282-X (Version None)
Quarter: 2011Q3

REPORT INFORMATION
  Report Type: 
  Country: None (occurrence: None)
  Receive Date: 20110804
  Receipt Date: 20110720
  Transmission Date: 20111222
  Serious: Yes (Other)
  Sender: FDA-Public Use
  Company Number: 2011SP034530

PATIENT
  Age: 29 Year
  Sex: Female

DRUGS (3)
  1. CERAZETTE [Concomitant]
  2. INSULIN [Concomitant]
  3. NEXPLANON [Suspect]
     Indication: CONTRACEPTION
     Dosage: 1 DF;
     Dates: start: 20110201

REACTIONS (3)
  - DIABETES MELLITUS INADEQUATE CONTROL [None]
  - HYPERGLYCAEMIA [None]
  - HYPOGLYCAEMIC COMA [None]
